FAERS Safety Report 5212137-8 (Version None)
Quarter: 2007Q1

REPORT INFORMATION
  Report Type: 
  Country: None (occurrence: None)
  Receive Date: 20070118
  Receipt Date: 20070108
  Transmission Date: 20070707
  Serious: Yes (Other)
  Sender: FDA-Public Use
  Company Number: US-SANOFI-SYNTHELABO-A03200700198

PATIENT
  Age: 46 Year
  Sex: Female
  Weight: 77.1 kg

DRUGS (4)
  1. AMBIEN [Suspect]
     Indication: INSOMNIA
     Dosage: UNK
     Route: 048
     Dates: start: 20040101, end: 20061001
  2. TEMAZEPAM [Concomitant]
     Dosage: UNK
     Route: 065
  3. PROZAC [Concomitant]
     Dosage: UNK
     Route: 065
  4. SEROQUEL [Concomitant]
     Dosage: UNK
     Route: 065

REACTIONS (2)
  - AMNESIA [None]
  - SLEEP WALKING [None]
